FAERS Safety Report 8506369-0 (Version None)
Quarter: 2012Q3

REPORT INFORMATION
  Report Type: 
  Country: None (occurrence: None)
  Receive Date: 20120712
  Receipt Date: 20120711
  Transmission Date: 20120928
  Serious: Yes (Other)
  Sender: FDA-Public Use
  Company Number: AW-ROCHE-1086816

PATIENT
  Sex: Male

DRUGS (2)
  1. ZELBORAF [Suspect]
     Indication: MALIGNANT MELANOMA
     Route: 048
     Dates: start: 20120604, end: 20120626
  2. ZELBORAF [Suspect]
     Dates: start: 20120703

REACTIONS (4)
  - BRONCHOPNEUMONIA [None]
  - PRURITUS [None]
  - CANDIDA SEPSIS [None]
  - RASH [None]
